FAERS Safety Report 9322275 (Version 1)
Quarter: 2013Q2

REPORT INFORMATION
  Report Type: Spontaneous
  Country: JP (occurrence: JP)
  Receive Date: 20130531
  Receipt Date: 20130531
  Transmission Date: 20140414
  Serious: Yes (Hospitalization)
  Sender: FDA-Public Use
  Company Number: JP-VIIV HEALTHCARE LIMITED-B0894283A

PATIENT
  Age: 63 Year
  Sex: Male

DRUGS (3)
  1. CELSENTRI [Suspect]
     Indication: HIV INFECTION
     Dosage: 800MG TWICE PER DAY
     Route: 048
  2. TRUVADA [Concomitant]
     Indication: HIV INFECTION
     Dosage: 1IUAX PER DAY
     Route: 048
  3. STOCRIN [Concomitant]
     Indication: HIV INFECTION
     Dosage: 600MG PER DAY
     Route: 048

REACTIONS (3)
  - Cataract [Recovered/Resolved]
  - Pigmentation disorder [Not Recovered/Not Resolved]
  - Visual acuity reduced [Unknown]
